FAERS Safety Report 11962113 (Version 1)
Quarter: 2016Q1

REPORT INFORMATION
  Report Type: Report from Study
  Country: DK (occurrence: DK)
  Receive Date: 20160126
  Receipt Date: 20160126
  Transmission Date: 20160526
  Serious: Yes (Hospitalization)
  Sender: FDA-Public Use
  Company Number: DK-WATSON-2016-00733

PATIENT
  Age: 78 Year
  Sex: Male
  Weight: 60 kg

DRUGS (8)
  1. PACLITAXEL. [Suspect]
     Active Substance: PACLITAXEL
     Indication: NON-SMALL CELL LUNG CANCER METASTATIC
     Dosage: 6 MG/ML
     Route: 042
     Dates: start: 20150318, end: 20150521
  2. PANODIL [Concomitant]
     Active Substance: ACETAMINOPHEN
     Indication: PULMONARY PAIN
     Dosage: UNKNOWN
     Route: 048
     Dates: start: 20150101
  3. PREDNISOLONE SODIUM PHOSPHATE. [Concomitant]
     Active Substance: PREDNISOLONE SODIUM PHOSPHATE
     Indication: CONDITION AGGRAVATED
     Dosage: 25 MG, DAILY
     Route: 048
     Dates: start: 20150504
  4. MOVICOL [Concomitant]
     Active Substance: POLYETHYLENE GLYCOL 3350\POTASSIUM CHLORIDE\SODIUM BICARBONATE\SODIUM CHLORIDE
     Indication: CONSTIPATION
     Dosage: ON DEMAND
     Dates: start: 20150320
  5. MUCOLYSIN [Concomitant]
     Active Substance: TIOPRONIN
     Indication: COUGH
     Dosage: 200 MG, 2 IN 1 DAY
     Route: 048
     Dates: start: 20150408
  6. VELIPARIB [Suspect]
     Active Substance: VELIPARIB
     Indication: NON-SMALL CELL LUNG CANCER METASTATIC
     Dosage: 120 MG, TWICE DAILY
     Route: 048
     Dates: start: 20150316, end: 20150525
  7. CARBOPLATIN. [Suspect]
     Active Substance: CARBOPLATIN
     Indication: NON-SMALL CELL LUNG CANCER METASTATIC
     Dosage: AUC 6
     Route: 042
     Dates: start: 20150318, end: 20150521
  8. PANTOPRAZOL [Concomitant]
     Active Substance: PANTOPRAZOLE SODIUM
     Indication: DECREASED APPETITE
     Dosage: 40 MG, DAILY
     Route: 048
     Dates: start: 20150504

REACTIONS (2)
  - Acute myocardial infarction [Recovered/Resolved]
  - Pneumonia [Recovering/Resolving]

NARRATIVE: CASE EVENT DATE: 20150530
